FAERS Safety Report 25099272 (Version 2)
Quarter: 2025Q2

REPORT INFORMATION
  Report Type: Spontaneous
  Country: MY (occurrence: MY)
  Receive Date: 20250320
  Receipt Date: 20250523
  Transmission Date: 20250716
  Serious: No
  Sender: ROCHE
  Company Number: MY-002147023-NVSC2025MY038236

PATIENT
  Age: 25 Year
  Sex: Female

DRUGS (13)
  1. OMALIZUMAB [Suspect]
     Active Substance: OMALIZUMAB
     Indication: Systemic lupus erythematosus
     Dosage: 300 MG, QMO
     Route: 058
  2. OMALIZUMAB [Suspect]
     Active Substance: OMALIZUMAB
     Indication: Urticarial vasculitis
  3. OMALIZUMAB [Suspect]
     Active Substance: OMALIZUMAB
     Indication: Antiphospholipid syndrome
  4. WARFARIN [Suspect]
     Active Substance: WARFARIN
     Indication: Antiphospholipid syndrome
     Route: 065
  5. WARFARIN [Suspect]
     Active Substance: WARFARIN
     Indication: Systemic lupus erythematosus
  6. WARFARIN [Suspect]
     Active Substance: WARFARIN
     Indication: Urticarial vasculitis
  7. METHOTREXATE [Suspect]
     Active Substance: METHOTREXATE
     Indication: Antiphospholipid syndrome
     Route: 065
  8. METHOTREXATE [Suspect]
     Active Substance: METHOTREXATE
     Indication: Systemic lupus erythematosus
  9. METHOTREXATE [Suspect]
     Active Substance: METHOTREXATE
     Indication: Urticarial vasculitis
  10. HYDROXYCHLOROQUINE [Suspect]
     Active Substance: HYDROXYCHLOROQUINE
     Indication: Systemic lupus erythematosus
     Route: 065
  11. HYDROXYCHLOROQUINE [Suspect]
     Active Substance: HYDROXYCHLOROQUINE
     Indication: Urticarial vasculitis
  12. HYDROXYCHLOROQUINE [Suspect]
     Active Substance: HYDROXYCHLOROQUINE
     Indication: Antiphospholipid syndrome
  13. ASPIRIN [Concomitant]
     Active Substance: ASPIRIN
     Indication: Product used for unknown indication
     Route: 065

REACTIONS (2)
  - Off label use [Unknown]
  - No adverse event [Unknown]
